FAERS Safety Report 26131724 (Version 1)
Quarter: 2025Q4

REPORT INFORMATION
  Report Type: Spontaneous
  Country: US (occurrence: None)
  Receive Date: 20251208
  Receipt Date: 20251208
  Transmission Date: 20260117
  Serious: Yes (Other)
  Sender: FDA-CTU
  Company Number: None

PATIENT
  Sex: Female

DRUGS (11)
  1. LENALIDOMIDE [Suspect]
     Active Substance: LENALIDOMIDE
     Indication: Plasma cell myeloma
     Dosage: TAKE 1 CAPSULE BY MOUTH DAILY FOR 21 DAYS FOLLOWED BY 7 DAYS OFF
     Route: 048
  2. ACYCLOVIR [Concomitant]
     Active Substance: ACYCLOVIR
  3. ALPRAZOLAM TAB 0.25MG [Concomitant]
  4. CARVEDILOL TAB 12.SMG [Concomitant]
  5. CARVEDILOL [Concomitant]
     Active Substance: CARVEDILOL
  6. DARZALEX SOL 100/5ML [Concomitant]
  7. DEXAMETHASONE [Concomitant]
     Active Substance: DEXAMETHASONE
  8. DIPHENHYDRAM CAP 25MG [Concomitant]
  9. ELIQUIS [Concomitant]
     Active Substance: APIXABAN
  10. FAMOTIDINE [Concomitant]
     Active Substance: FAMOTIDINE
  11. FUROSEMIDE [Concomitant]
     Active Substance: FUROSEMIDE

REACTIONS (6)
  - Joint swelling [None]
  - Peripheral swelling [None]
  - Dehydration [None]
  - Lipids increased [None]
  - Fluid retention [None]
  - Peripheral swelling [None]
